FAERS Safety Report 26067626 (Version 3)
Quarter: 2025Q4

REPORT INFORMATION
  Report Type: Report from Study
  Country: CO (occurrence: CO)
  Receive Date: 20251120
  Receipt Date: 20251210
  Transmission Date: 20260117
  Serious: Yes (Hospitalization, Other)
  Sender: RECORDATI
  Company Number: CO-ORPHANEU-2025008163

PATIENT
  Age: 36 Year
  Sex: Female
  Weight: 69 kg

DRUGS (80)
  1. ISTURISA [Suspect]
     Active Substance: OSILODROSTAT PHOSPHATE
     Indication: Cushing^s syndrome
     Dosage: 2 MG, Q12H
     Route: 048
     Dates: start: 20230302, end: 2023
  2. ISTURISA [Suspect]
     Active Substance: OSILODROSTAT PHOSPHATE
     Dosage: 2 MG A DAY
     Route: 048
     Dates: start: 20230411, end: 2023
  3. ISTURISA [Suspect]
     Active Substance: OSILODROSTAT PHOSPHATE
     Dosage: 2 MG A DAY
     Route: 048
     Dates: start: 20230905, end: 202409
  4. ISTURISA [Suspect]
     Active Substance: OSILODROSTAT PHOSPHATE
     Dosage: 2 MG A DAY
     Route: 048
     Dates: start: 20241007
  5. ISTURISA [Suspect]
     Active Substance: OSILODROSTAT PHOSPHATE
     Dosage: 2 MG A DAY
     Route: 048
     Dates: start: 20250108, end: 2025
  6. ISTURISA [Suspect]
     Active Substance: OSILODROSTAT PHOSPHATE
     Dosage: 2 MG, Q12H
     Route: 048
     Dates: start: 202507, end: 2025
  7. ISTURISA [Suspect]
     Active Substance: OSILODROSTAT PHOSPHATE
     Dosage: 1 MG, Q12H
     Route: 048
     Dates: start: 20250912, end: 202509
  8. ISTURISA [Suspect]
     Active Substance: OSILODROSTAT PHOSPHATE
     Dosage: 1 MG, Q12H
     Route: 048
     Dates: start: 20250926, end: 2025
  9. ISTURISA [Suspect]
     Active Substance: OSILODROSTAT PHOSPHATE
     Dosage: 1 MG, Q12H
     Route: 048
     Dates: start: 20251007, end: 202511
  10. ESOMEPRAZOLE [Concomitant]
     Active Substance: ESOMEPRAZOLE
     Indication: Prophylaxis
     Dosage: 40 MG EVERY DAY
  11. INSULIN GLARGINE [Concomitant]
     Active Substance: INSULIN GLARGINE
     Indication: Diabetes mellitus
     Dosage: 100 UI/ML EVERY DAY
  12. INSULIN GLARGINE [Concomitant]
     Active Substance: INSULIN GLARGINE
     Dosage: 18 UNITS DAILY
     Dates: start: 20220628
  13. DAPAGLIFLOZIN PROPANEDIOL\METFORMIN HYDROCHLORIDE [Concomitant]
     Active Substance: DAPAGLIFLOZIN PROPANEDIOL\METFORMIN HYDROCHLORIDE
     Indication: Diabetes mellitus
     Dosage: 5/1000 MG EVERY DAY
  14. DAPAGLIFLOZIN PROPANEDIOL\METFORMIN HYDROCHLORIDE [Concomitant]
     Active Substance: DAPAGLIFLOZIN PROPANEDIOL\METFORMIN HYDROCHLORIDE
     Dosage: 100 / 5 MG TWICE A DAY
     Dates: start: 20221116
  15. DAPAGLIFLOZIN PROPANEDIOL\METFORMIN HYDROCHLORIDE [Concomitant]
     Active Substance: DAPAGLIFLOZIN PROPANEDIOL\METFORMIN HYDROCHLORIDE
     Dosage: 1000/5 MG TWICE A DAY
     Dates: start: 20230411, end: 2023
  16. DAPAGLIFLOZIN PROPANEDIOL\METFORMIN HYDROCHLORIDE [Concomitant]
     Active Substance: DAPAGLIFLOZIN PROPANEDIOL\METFORMIN HYDROCHLORIDE
     Dosage: 1000/5 MG TWICE A DAY
     Dates: start: 20230905
  17. DAPAGLIFLOZIN PROPANEDIOL\METFORMIN HYDROCHLORIDE [Concomitant]
     Active Substance: DAPAGLIFLOZIN PROPANEDIOL\METFORMIN HYDROCHLORIDE
     Dosage: 10005 MG TWICE A DAY
     Dates: start: 20241007
  18. DAPAGLIFLOZIN PROPANEDIOL\METFORMIN HYDROCHLORIDE [Concomitant]
     Active Substance: DAPAGLIFLOZIN PROPANEDIOL\METFORMIN HYDROCHLORIDE
     Dosage: 1000/5 MG TWICE A DAY
     Dates: start: 20250108
  19. LEVOTHYROXINE [Concomitant]
     Active Substance: LEVOTHYROXINE
     Indication: Primary hypothyroidism
     Dosage: 75 MCG EVERY DAY
  20. LEVOTHYROXINE [Concomitant]
     Active Substance: LEVOTHYROXINE
     Dosage: 50 MICROGRAM, QD
     Dates: start: 20220628, end: 2022
  21. LEVOTHYROXINE [Concomitant]
     Active Substance: LEVOTHYROXINE
     Dosage: 50 MICROGRAM, QD
     Dates: start: 20220806, end: 2022
  22. LEVOTHYROXINE [Concomitant]
     Active Substance: LEVOTHYROXINE
     Dosage: 50
     Dates: start: 20221116
  23. LEVOTHYROXINE [Concomitant]
     Active Substance: LEVOTHYROXINE
     Dosage: 50
     Dates: start: 20230411, end: 2023
  24. LEVOTHYROXINE [Concomitant]
     Active Substance: LEVOTHYROXINE
     Dosage: 5000
     Dates: start: 20230905
  25. LEVOTHYROXINE [Concomitant]
     Active Substance: LEVOTHYROXINE
     Dosage: 50
     Dates: start: 20241007
  26. LEVOTHYROXINE [Concomitant]
     Active Substance: LEVOTHYROXINE
     Dosage: 50 MG, QD
     Dates: start: 20250108
  27. AMLODIPINE [Concomitant]
     Active Substance: AMLODIPINE BESYLATE
     Indication: Hypertension
     Dosage: 5 MG EVERY DAY
  28. AMLODIPINE [Concomitant]
     Active Substance: AMLODIPINE BESYLATE
     Dosage: 10 MG A DAY
     Dates: start: 20221116
  29. AMLODIPINE [Concomitant]
     Active Substance: AMLODIPINE BESYLATE
     Dosage: 10 MG A DAY
     Dates: start: 20230411, end: 2023
  30. AMLODIPINE [Concomitant]
     Active Substance: AMLODIPINE BESYLATE
     Dosage: 5 MG A DAY
     Dates: start: 20230905
  31. AMLODIPINE [Concomitant]
     Active Substance: AMLODIPINE BESYLATE
     Dosage: 5 MG A DAY
     Dates: start: 20241007
  32. AMLODIPINE [Concomitant]
     Active Substance: AMLODIPINE BESYLATE
     Dosage: 5 MG, Q12H
     Dates: start: 20250920
  33. INSULIN ASPART [Concomitant]
     Active Substance: INSULIN ASPART
     Indication: Product used for unknown indication
     Dosage: 8 UNITS WITH EACH MEAL
     Dates: start: 20220628, end: 2022
  34. INSULIN ASPART [Concomitant]
     Active Substance: INSULIN ASPART
     Dosage: 12 WITH LUNCH
     Dates: start: 20220806, end: 2022
  35. INSULIN ASPART [Concomitant]
     Active Substance: INSULIN ASPART
     Dosage: 15 UNITS AT MIDDAY
     Dates: start: 20221116
  36. INSULIN ASPART [Concomitant]
     Active Substance: INSULIN ASPART
     Dosage: 15 UNITS AT MIDDAY
     Dates: start: 20230411, end: 2023
  37. INSULIN ASPART [Concomitant]
     Active Substance: INSULIN ASPART
     Dosage: 15 UNITS AT MIDDAY
     Dates: start: 20230905
  38. LOSARTAN AND HYDROCHLOROTHIAZIDE [Concomitant]
     Active Substance: HYDROCHLOROTHIAZIDE\LOSARTAN POTASSIUM
     Indication: Product used for unknown indication
     Dosage: 100/25 MG DAILY
     Dates: start: 20220628
  39. LINAGLIPTIN\METFORMIN HYDROCHLORIDE [Concomitant]
     Active Substance: LINAGLIPTIN\METFORMIN HYDROCHLORIDE
     Indication: Product used for unknown indication
     Dosage: 2.5/850 MG DAILY
     Dates: start: 20220628
  40. BIOTIN [Concomitant]
     Active Substance: BIOTIN
     Indication: Product used for unknown indication
     Dosage: UNK
     Dates: start: 20220628
  41. INSULIN DEGLUDEC [Concomitant]
     Active Substance: INSULIN DEGLUDEC
     Indication: Product used for unknown indication
     Dosage: 46 PER DAY
     Dates: start: 20220806, end: 2022
  42. INSULIN DEGLUDEC [Concomitant]
     Active Substance: INSULIN DEGLUDEC
     Dosage: 50 UNITS AM
     Dates: start: 20221116
  43. METFORMIN [Concomitant]
     Active Substance: METFORMIN HYDROCHLORIDE
     Indication: Product used for unknown indication
     Dosage: 1000 EVERY 12 HOURS
     Dates: start: 20220806
  44. METOPROLOL [Concomitant]
     Active Substance: METOPROLOL
     Indication: Product used for unknown indication
     Dosage: 25 EVERY 12 HOURS
     Dates: start: 20220806
  45. SPIRONOLACTONE [Concomitant]
     Active Substance: SPIRONOLACTONE
     Indication: Product used for unknown indication
     Dosage: 400 MG EVERY DAY
     Dates: start: 20220806, end: 2022
  46. SPIRONOLACTONE [Concomitant]
     Active Substance: SPIRONOLACTONE
     Dosage: 300 MG A DAY
     Dates: start: 20221116
  47. SPIRONOLACTONE [Concomitant]
     Active Substance: SPIRONOLACTONE
     Dosage: 300 MG A DAY
     Dates: start: 20230411, end: 2023
  48. SPIRONOLACTONE [Concomitant]
     Active Substance: SPIRONOLACTONE
     Dosage: 300 MG A DAY
     Dates: start: 20230905
  49. SPIRONOLACTONE [Concomitant]
     Active Substance: SPIRONOLACTONE
     Dosage: 300 MG A DAY
     Dates: start: 20241007
  50. SPIRONOLACTONE [Concomitant]
     Active Substance: SPIRONOLACTONE
     Dosage: 300 MG A DAY
     Dates: start: 20250108
  51. CARVEDILOL [Concomitant]
     Active Substance: CARVEDILOL
     Indication: Product used for unknown indication
     Dosage: 25 MG, BID
     Dates: start: 20221116
  52. CARVEDILOL [Concomitant]
     Active Substance: CARVEDILOL
     Dosage: 25 MG, BID
     Dates: start: 20230411, end: 2023
  53. CARVEDILOL [Concomitant]
     Active Substance: CARVEDILOL
     Dosage: 25 MG, BID
     Dates: start: 20230905
  54. CARVEDILOL [Concomitant]
     Active Substance: CARVEDILOL
     Dosage: 25 MG, BID
     Dates: start: 20241007
  55. CARVEDILOL [Concomitant]
     Active Substance: CARVEDILOL
     Dosage: 25 MG, BID
     Dates: start: 20250108
  56. VITAMIN D3 [Concomitant]
     Active Substance: CHOLECALCIFEROL
     Indication: Product used for unknown indication
     Dosage: 5000 UNITS
     Dates: start: 20221116
  57. VITAMIN D3 [Concomitant]
     Active Substance: CHOLECALCIFEROL
     Dosage: 5000 UNITS
     Dates: start: 20230411, end: 2023
  58. VITAMIN D3 [Concomitant]
     Active Substance: CHOLECALCIFEROL
     Dosage: 5000 UNITS
     Dates: start: 20230905
  59. VITAMIN D3 [Concomitant]
     Active Substance: CHOLECALCIFEROL
     Dosage: 5000 UNITS
     Dates: start: 20241007
  60. VITAMIN D3 [Concomitant]
     Active Substance: CHOLECALCIFEROL
     Dosage: 5000 UNITS
     Dates: start: 20250108
  61. ACETAMINOPHEN [Concomitant]
     Active Substance: ACETAMINOPHEN
     Indication: Pain management
     Dosage: 1000 MG
     Dates: start: 20250218, end: 2025
  62. ACETAMINOPHEN [Concomitant]
     Active Substance: ACETAMINOPHEN
     Dosage: UNK
     Dates: start: 20250826
  63. CLOPIDOGREL [Concomitant]
     Active Substance: CLOPIDOGREL BISULFATE
     Indication: Product used for unknown indication
     Dosage: 75 MG EVERY 24 HOURS
     Dates: start: 20250527, end: 2025
  64. CLOPIDOGREL [Concomitant]
     Active Substance: CLOPIDOGREL BISULFATE
     Dosage: 75 MG EVERY 24 HOURS
     Dates: start: 20250620
  65. APIXABAN [Concomitant]
     Active Substance: APIXABAN
     Indication: Product used for unknown indication
     Dosage: 5 MG, Q12H
     Route: 048
     Dates: start: 20250714, end: 2025
  66. APIXABAN [Concomitant]
     Active Substance: APIXABAN
     Dosage: 2.5 MG, BID
     Route: 048
     Dates: start: 20250826, end: 2025
  67. APIXABAN [Concomitant]
     Active Substance: APIXABAN
     Dosage: 2.5 MG, Q12H
     Route: 048
     Dates: start: 20250912, end: 202509
  68. APIXABAN [Concomitant]
     Active Substance: APIXABAN
     Dosage: 2.5 MG, Q12H
     Route: 048
     Dates: start: 20250926, end: 2025
  69. APIXABAN [Concomitant]
     Active Substance: APIXABAN
     Dosage: 2.5 MG, Q12H
     Route: 048
     Dates: start: 20251007
  70. LACOSAMIDE [Concomitant]
     Active Substance: LACOSAMIDE
     Indication: Product used for unknown indication
     Dosage: 100 MG, BID
     Dates: start: 20250826, end: 2025
  71. LACOSAMIDE [Concomitant]
     Active Substance: LACOSAMIDE
     Dosage: 20 MG, Q12H
     Dates: start: 20250912, end: 202509
  72. LACOSAMIDE [Concomitant]
     Active Substance: LACOSAMIDE
     Dosage: 20 MG, Q12H
     Dates: start: 20250926
  73. LACOSAMIDE [Concomitant]
     Active Substance: LACOSAMIDE
     Dosage: 200 MG, Q12H
     Dates: start: 20251007
  74. ATORVASTATIN [Concomitant]
     Active Substance: ATORVASTATIN
     Indication: Product used for unknown indication
     Dosage: 40 MG
     Route: 048
     Dates: start: 20250826, end: 2025
  75. ATORVASTATIN [Concomitant]
     Active Substance: ATORVASTATIN
     Dosage: 40 MG/ DAY
     Route: 048
     Dates: start: 20250912, end: 202509
  76. ATORVASTATIN [Concomitant]
     Active Substance: ATORVASTATIN
     Dosage: 40 MG, QD
     Route: 048
     Dates: start: 20250926, end: 2025
  77. ATORVASTATIN [Concomitant]
     Active Substance: ATORVASTATIN
     Dosage: 40 MG DAY
     Route: 048
     Dates: start: 20251007
  78. OMEPRAZOLE [Concomitant]
     Active Substance: OMEPRAZOLE
     Indication: Product used for unknown indication
     Dosage: 20 MG
     Dates: start: 20250826
  79. METOPIRONE [Concomitant]
     Active Substance: METYRAPONE
     Indication: Product used for unknown indication
     Dosage: 250 MG, Q8H, TABLET
     Route: 048
     Dates: start: 20250912
  80. BISACODYL [Concomitant]
     Active Substance: BISACODYL
     Indication: Product used for unknown indication
     Dosage: 5 MG/DAY
     Dates: start: 20250920

REACTIONS (2)
  - Epilepsy [Unknown]
  - Drug ineffective [Recovered/Resolved]

NARRATIVE: CASE EVENT DATE: 20251026
